FAERS Safety Report 4868919-5 (Version None)
Quarter: 2005Q4

REPORT INFORMATION
  Report Type: 
  Country: None (occurrence: None)
  Receive Date: 20051229
  Receipt Date: 20051005
  Transmission Date: 20060501
  Serious: Yes (Hospitalization)
  Sender: FDA-Public Use
  Company Number: US-MERCK-0510USA04768

PATIENT
  Age: 89 Year
  Sex: Female
  Weight: 62 kg

DRUGS (1)
  1. VIOXX [Suspect]
     Indication: ARTHRITIS
     Route: 048
     Dates: end: 20010814

REACTIONS (2)
  - DEPRESSION [None]
  - ISCHAEMIC STROKE [None]
